FAERS Safety Report 8880320 (Version 1)
Quarter: 2012Q4

REPORT INFORMATION
  Report Type: 
  Country: US (occurrence: US)
  Receive Date: 20121031
  Receipt Date: 20121031
  Transmission Date: 20130627
  Serious: Yes (Hospitalization, Other)
  Sender: FDA-Public Use
  Company Number: CHPA2012US022375

PATIENT
  Age: 77 Year
  Sex: Male

DRUGS (14)
  1. NUPERCAINAL HEMORRHOIDAL/ANES OINTMENT [Suspect]
     Indication: ANORECTAL DISORDER
     Dosage: Unk, 3 to 4 times daily
     Route: 061
     Dates: start: 2007
  2. TRILEPTAL [Suspect]
     Indication: CONVULSION
  3. ZONISAMIDE [Suspect]
     Indication: CONVULSION
     Dosage: Unk, Unk
     Dates: start: 2008
  4. KEPPRA [Suspect]
     Indication: CONVULSION
     Dosage: Unk, Unk
     Dates: start: 2006
  5. LACTULOSE [Concomitant]
     Indication: HEPATIC CIRRHOSIS
     Dosage: Unk, Unk
     Dates: start: 2006
  6. ATENOLOL [Concomitant]
     Indication: MITRAL VALVE REPLACEMENT
     Dosage: Unk, Unk
     Dates: start: 2008
  7. VITAMIN B12 [Concomitant]
  8. POTASSIUM CHLORIDE [Concomitant]
     Indication: HEPATIC CIRRHOSIS
     Dosage: 15 ml, once daily
  9. REFIXIME [Concomitant]
     Indication: HEPATIC CIRRHOSIS
     Dosage: 550 mg, twice a day
     Dates: start: 2011
  10. CARDIZEM [Concomitant]
     Indication: MITRAL VALVE REPLACEMENT
     Dosage: Unk, Unk
     Dates: start: 1998, end: 2008
  11. LASIX [Concomitant]
     Indication: HEPATIC CIRRHOSIS
     Dosage: 40 mg, twice daily
  12. LASIX [Concomitant]
     Dosage: 10 mg, once daily
  13. SPIRONOLACTONE [Concomitant]
     Indication: HEPATIC CIRRHOSIS
     Dosage: 100 mg, twice daily
  14. SPIRONOLACTONE [Concomitant]
     Dosage: 50 mg, three times daily

REACTIONS (7)
  - Fluid overload [Recovered/Resolved]
  - Pneumonia aspiration [Recovered/Resolved]
  - Urethral stenosis [Not Recovered/Not Resolved]
  - Hypothyroidism [Not Recovered/Not Resolved]
  - Cataract [Not Recovered/Not Resolved]
  - Vitamin D deficiency [Recovered/Resolved]
  - Somnolence [Recovered/Resolved]
